FAERS Safety Report 9820790 (Version 1)
Quarter: 2013Q4

REPORT INFORMATION
  Report Type: Spontaneous
  Country: US (occurrence: None)
  Receive Date: 20131025
  Receipt Date: 20131025
  Transmission Date: 20140711
  Serious: No
  Sender: FDA-Public Use
  Company Number: AP356-00123-SPO-US

PATIENT
  Sex: Female

DRUGS (1)
  1. BELVIQ (LORCASERIN HYDROCHLORIDE) [Suspect]
     Dates: start: 2013, end: 2013

REACTIONS (1)
  - Nausea [None]
